FAERS Safety Report 6004606-8 (Version None)
Quarter: 2008Q4

REPORT INFORMATION
  Report Type: 
  Country: None (occurrence: None)
  Receive Date: 20081216
  Receipt Date: 20080507
  Transmission Date: 20090506
  Serious: No
  Sender: FDA-Public Use
  Company Number: US-BRISTOL-MYERS SQUIBB COMPANY-14181564

PATIENT
  Age: 65 Year
  Sex: Male

DRUGS (1)
  1. PRAVASTATIN SODIUM [Suspect]
     Indication: BLOOD CHOLESTEROL
     Dosage: 40 MG PO QD,FROM DEC07 TO FEB08; 20MG FROM FEB08-04APR08
     Route: 048
     Dates: start: 20071201, end: 20080404

REACTIONS (2)
  - DYSPHAGIA [None]
  - MYALGIA [None]
